FAERS Safety Report 11120402 (Version 2)
Quarter: 2016Q1

REPORT INFORMATION
  Report Type: Report from Study
  Country: AU (occurrence: AU)
  Receive Date: 20150518
  Receipt Date: 20160223
  Transmission Date: 20160525
  Serious: Yes (Other)
  Sender: FDA-Public Use
  Company Number: AU-GILEAD-2015-0153548

PATIENT
  Age: 42 Year
  Sex: Male
  Weight: 95 kg

DRUGS (39)
  1. RITUXIMAB [Suspect]
     Active Substance: RITUXIMAB
     Dosage: 791 MG, UNK
     Route: 042
     Dates: start: 20150305, end: 20150305
  2. RITUXIMAB [Suspect]
     Active Substance: RITUXIMAB
     Dosage: UNK
     Route: 042
  3. DIPROSONE                          /00008502/ [Concomitant]
     Active Substance: BETAMETHASONE SODIUM PHOSPHATE
     Dosage: UNK
     Route: 061
     Dates: start: 201502, end: 20150424
  4. PENTAMIDINE [Concomitant]
     Active Substance: PENTAMIDINE
     Indication: ANTIFUNGAL PROPHYLAXIS
     Route: 055
     Dates: start: 20150424, end: 20151109
  5. MAXOLON [Concomitant]
     Active Substance: METOCLOPRAMIDE HYDROCHLORIDE
     Indication: NAUSEA
     Dosage: UNK
     Route: 048
     Dates: start: 20150307
  6. BENDAMUSTINE [Suspect]
     Active Substance: BENDAMUSTINE
     Dosage: 190 MG, UNK
     Route: 042
     Dates: start: 20150306, end: 20150306
  7. BENDAMUSTINE [Suspect]
     Active Substance: BENDAMUSTINE
     Dosage: UNK
     Route: 042
  8. BENDAMUSTINE [Suspect]
     Active Substance: BENDAMUSTINE
     Dosage: 190 MG, UNK
     Route: 042
     Dates: start: 20150814, end: 20150814
  9. BENDAMUSTINE [Suspect]
     Active Substance: BENDAMUSTINE
     Dosage: 190 MG, UNK
     Route: 042
     Dates: start: 20150410, end: 20150410
  10. RITUXIMAB [Suspect]
     Active Substance: RITUXIMAB
     Dosage: 1055 MG, UNK
     Route: 042
     Dates: start: 20150409, end: 20150409
  11. PANADOL                            /00020001/ [Concomitant]
     Dosage: UNK
     Route: 048
     Dates: start: 20150305, end: 20150814
  12. BENDAMUSTINE [Suspect]
     Active Substance: BENDAMUSTINE
     Dosage: UNK
     Route: 042
  13. BENDAMUSTINE [Suspect]
     Active Substance: BENDAMUSTINE
     Dosage: 190 MG, UNK
     Route: 042
     Dates: start: 20150508, end: 20150508
  14. RITUXIMAB [Suspect]
     Active Substance: RITUXIMAB
     Indication: CHRONIC LYMPHOCYTIC LEUKAEMIA
     Dosage: 791 MG, CYCLICAL
     Route: 042
     Dates: start: 20150305
  15. RITUXIMAB [Suspect]
     Active Substance: RITUXIMAB
     Dosage: 1055 MG, UNK
     Route: 042
     Dates: start: 20150813, end: 20150813
  16. PREDNISONE. [Concomitant]
     Active Substance: PREDNISONE
     Dosage: UNK
     Route: 048
     Dates: start: 20150414, end: 20150418
  17. BENDAMUSTINE [Suspect]
     Active Substance: BENDAMUSTINE
     Dosage: 190 MG, UNK
     Route: 042
     Dates: start: 20150715, end: 20150715
  18. IDELALISIB [Suspect]
     Active Substance: IDELALISIB
     Dosage: 150 MG, BID
     Route: 048
     Dates: start: 20150428
  19. BENDAMUSTINE [Suspect]
     Active Substance: BENDAMUSTINE
     Indication: CHRONIC LYMPHOCYTIC LEUKAEMIA
     Dosage: 190 MG, CYCLICAL
     Route: 042
     Dates: start: 20150305
  20. RITUXIMAB [Suspect]
     Active Substance: RITUXIMAB
     Dosage: 1055 MG, CYCLICAL
     Route: 042
     Dates: start: 20150409
  21. RITUXIMAB [Suspect]
     Active Substance: RITUXIMAB
     Dosage: 1055 MG, UNK
     Route: 042
     Dates: start: 20150507, end: 20150507
  22. ONDANSETRON [Concomitant]
     Active Substance: ONDANSETRON
     Dosage: UNK
     Route: 042
     Dates: start: 20150305, end: 20150821
  23. VALACYCLOVIR [Concomitant]
     Active Substance: VALACYCLOVIR HYDROCHLORIDE
     Route: 048
     Dates: start: 20150305, end: 20151109
  24. BENDAMUSTINE [Suspect]
     Active Substance: BENDAMUSTINE
     Dosage: 190 MG, UNK
     Route: 042
     Dates: start: 20150305, end: 20150305
  25. BENDAMUSTINE [Suspect]
     Active Substance: BENDAMUSTINE
     Dosage: 190 MG, UNK
     Route: 042
     Dates: start: 20150813, end: 20150813
  26. RITUXIMAB [Suspect]
     Active Substance: RITUXIMAB
     Dosage: 1055 MG, UNK
     Route: 042
     Dates: start: 20150714, end: 20150714
  27. BACTRIM [Concomitant]
     Active Substance: SULFAMETHOXAZOLE\TRIMETHOPRIM
     Indication: PNEUMOCYSTIS JIROVECII PNEUMONIA
     Route: 048
     Dates: start: 20150413, end: 20150414
  28. CLEXANE [Concomitant]
     Active Substance: ENOXAPARIN SODIUM
     Indication: DEEP VEIN THROMBOSIS
     Route: 058
     Dates: start: 20150327, end: 20150509
  29. CLEXANE [Concomitant]
     Active Substance: ENOXAPARIN SODIUM
     Dosage: 100 MG, UNK
     Dates: start: 20150513, end: 20150828
  30. ZYRTEC [Concomitant]
     Active Substance: CETIRIZINE HYDROCHLORIDE
     Route: 048
     Dates: start: 20150305, end: 20150813
  31. BENDAMUSTINE [Suspect]
     Active Substance: BENDAMUSTINE
     Dosage: 190 MG, UNK
     Route: 042
     Dates: start: 20150409, end: 20150409
  32. BENDAMUSTINE [Suspect]
     Active Substance: BENDAMUSTINE
     Dosage: 190 MG, UNK
     Route: 042
     Dates: start: 20150616, end: 20150616
  33. RITUXIMAB [Suspect]
     Active Substance: RITUXIMAB
     Dosage: 1055 MG, UNK
     Route: 042
     Dates: start: 20150616, end: 20150616
  34. PANADOL                            /00020001/ [Concomitant]
     Route: 048
     Dates: start: 20150305
  35. IDELALISIB [Suspect]
     Active Substance: IDELALISIB
     Indication: CHRONIC LYMPHOCYTIC LEUKAEMIA
     Dosage: 150 MG, BID
     Route: 048
     Dates: start: 20150305, end: 20150320
  36. BENDAMUSTINE [Suspect]
     Active Substance: BENDAMUSTINE
     Dosage: 190 MG, UNK
     Route: 042
     Dates: start: 20150714, end: 20150714
  37. BENDAMUSTINE [Suspect]
     Active Substance: BENDAMUSTINE
     Dosage: 190 MG, UNK
     Route: 042
     Dates: start: 20150507, end: 20150507
  38. BENDAMUSTINE [Suspect]
     Active Substance: BENDAMUSTINE
     Dosage: 190 MG, UNK
     Route: 042
     Dates: start: 20150617, end: 20150617
  39. MAXOLON [Concomitant]
     Active Substance: METOCLOPRAMIDE HYDROCHLORIDE
     Dosage: UNK
     Dates: start: 20150510, end: 20150512

REACTIONS (1)
  - Thrombosis [Recovered/Resolved]

NARRATIVE: CASE EVENT DATE: 20150513
